FAERS Safety Report 8025940 (Version 2)
Quarter: 2014Q1

REPORT INFORMATION
  Report Type: Spontaneous
  Country: US (occurrence: US)
  Receive Date: 20110708
  Receipt Date: 20140303
  Transmission Date: 20141002
  Serious: Yes (Hospitalization, Other)
  Sender: FDA-Public Use
  Company Number: US-ASTELLAS-2011US003579

PATIENT
  Sex: Female
  Weight: 77 kg

DRUGS (10)
  1. PROGRAF [Suspect]
     Indication: LIVER TRANSPLANT
     Dosage: 3 MG, BID
     Route: 048
     Dates: start: 20031026, end: 20110630
  2. CELLCEPT [Concomitant]
     Indication: LIVER TRANSPLANT
     Dosage: 750 MG, BID
     Route: 048
  3. DAPSONE [Concomitant]
     Indication: PRODUCT USED FOR UNKNOWN INDICATION
     Dosage: 100 MG, 3XWEEKLY
     Route: 048
  4. WELLBUTRIN [Concomitant]
     Indication: ANTIDEPRESSANT THERAPY
     Dosage: 150 MG, BID
     Route: 048
  5. LAMICTAL [Concomitant]
     Indication: ANTIDEPRESSANT THERAPY
     Dosage: 200 MG, BID
     Route: 048
  6. DITROPAN [Concomitant]
     Indication: BLADDER DISORDER
     Dosage: 10 MG, BID
     Route: 048
  7. ATENOLOL [Concomitant]
     Indication: BLOOD PRESSURE
     Dosage: 100 MG, UID/QD
     Route: 048
  8. CHLORTHALIDONE [Concomitant]
     Indication: BLOOD PRESSURE
     Dosage: 25 MG, UID/QD
     Route: 048
  9. MAGNESIUM OXIDE [Concomitant]
     Indication: PRODUCT USED FOR UNKNOWN INDICATION
     Dosage: 400 MG, UID/QD
     Route: 048
  10. MULTIVITAMIN [Concomitant]
     Indication: PRODUCT USED FOR UNKNOWN INDICATION
     Dosage: 1 DF, UID/QD
     Route: 048

REACTIONS (6)
  - Brain injury [Unknown]
  - Hip surgery [Recovered/Resolved]
  - Hip surgery [Recovered/Resolved]
  - Knee operation [Recovered/Resolved]
  - Meniscus injury [Recovered/Resolved]
  - Hernia [Recovered/Resolved]
